FAERS Safety Report 11681223 (Version 2)
Quarter: 2015Q4

REPORT INFORMATION
  Report Type: Spontaneous
  Country: US (occurrence: US)
  Receive Date: 20151027
  Receipt Date: 20151104
  Transmission Date: 20160304
  Serious: No
  Sender: FDA-Public Use
  Company Number: US-ELI_LILLY_AND_COMPANY-US201007002686

PATIENT
  Age: 68 Year
  Sex: Female

DRUGS (3)
  1. FORTEO [Suspect]
     Active Substance: TERIPARATIDE
     Indication: OSTEOPOROSIS
     Dosage: 20 UG, DAILY (1/D)
     Dates: start: 20091002
  2. FORTEO [Suspect]
     Active Substance: TERIPARATIDE
     Dosage: 20 UG, QD
  3. FORTEO [Suspect]
     Active Substance: TERIPARATIDE
     Dosage: 20 UG, QD

REACTIONS (10)
  - Limb discomfort [Unknown]
  - Intentional product misuse [Unknown]
  - Insomnia [Unknown]
  - Paraesthesia [Unknown]
  - Arthropathy [Unknown]
  - Sensory loss [Recovering/Resolving]
  - Neuropathy peripheral [Unknown]
  - Coeliac disease [Unknown]
  - Pain [Recovered/Resolved]
  - Hyporeflexia [Unknown]

NARRATIVE: CASE EVENT DATE: 200910
